FAERS Safety Report 17242970 (Version 1)
Quarter: 2019Q4

REPORT INFORMATION
  Report Type: Spontaneous
  Country: US (occurrence: US)
  Receive Date: 20191212
  Receipt Date: 20191212
  Transmission Date: 20200122
  Serious: No
  Sender: FDA-Public Use
  Company Number: None

PATIENT
  Age: 64 Year
  Sex: Female

DRUGS (1)
  1. TREMFYA [Suspect]
     Active Substance: GUSELKUMAB
     Indication: PSORIASIS
     Dosage: ?          OTHER DOSE:100MG/1ML;OTHER FREQUENCY:EVERY 8 WEEKS;?
     Route: 059
     Dates: start: 20190821

REACTIONS (2)
  - Parosmia [None]
  - Taste disorder [None]

NARRATIVE: CASE EVENT DATE: 20191015
